FAERS Safety Report 9786121 (Version 2)
Quarter: 2014Q1

REPORT INFORMATION
  Report Type: Spontaneous
  Country: US (occurrence: None)
  Receive Date: 20131224
  Receipt Date: 20140115
  Transmission Date: 20141002
  Serious: Yes (Death, Hospitalization)
  Sender: FDA-Public Use
  Company Number: UTC-041898

PATIENT
  Age: 76 Year
  Sex: Male
  Weight: 102.3 kg

DRUGS (3)
  1. REMODULIN (10 MILLIGRAM/MILLILITERS, INJECTION FOR INFUSION) (TREPROSTINIL SODIUM) [Suspect]
     Indication: PULMONARY ARTERIAL HYPERTENSION
     Dosage: 80.64 UG/KG (0.056 UG/KG, 1 IN 1 MIN) SUBCUTANEOUS
     Route: 058
     Dates: start: 20040624
  2. REVATIO (SILDENAFIL CITRATE) (UNKNOWN) [Concomitant]
  3. COUMADIN (WARFARIN) [Concomitant]

REACTIONS (3)
  - Epistaxis [None]
  - Gastrointestinal haemorrhage [None]
  - Anaemia [None]
